FAERS Safety Report 11248660 (Version 3)
Quarter: 2015Q4

REPORT INFORMATION
  Report Type: Spontaneous
  Country: US (occurrence: US)
  Receive Date: 20150708
  Receipt Date: 20151027
  Transmission Date: 20160304
  Serious: No
  Sender: FDA-Public Use
  Company Number: US-ELI_LILLY_AND_COMPANY-US201002003056

PATIENT
  Age: 56 Year
  Sex: Female

DRUGS (3)
  1. EVISTA [Suspect]
     Active Substance: RALOXIFENE HYDROCHLORIDE
     Dosage: 60 MG, DAILY (1/D)
     Dates: start: 200809, end: 200902
  2. PROZAC [Suspect]
     Active Substance: FLUOXETINE HYDROCHLORIDE
  3. FORTEO [Suspect]
     Active Substance: TERIPARATIDE
     Indication: OSTEOPOROSIS
     Dosage: 20 UG, DAILY (1/D)
     Dates: start: 200903, end: 20100202

REACTIONS (13)
  - Diarrhoea [Unknown]
  - Aphasia [Unknown]
  - Gait disturbance [Unknown]
  - Drug intolerance [Unknown]
  - Anger [Unknown]
  - Chest discomfort [Unknown]
  - Vomiting [Unknown]
  - Fall [Unknown]
  - Fracture [Unknown]
  - Dry mouth [Unknown]
  - Constipation [Unknown]
  - Feeling abnormal [Unknown]
  - Joint swelling [Unknown]

NARRATIVE: CASE EVENT DATE: 200812
